FAERS Safety Report 9265120 (Version 1)
Quarter: 2013Q2

REPORT INFORMATION
  Report Type: Spontaneous
  Country: US (occurrence: None)
  Receive Date: 20130430
  Receipt Date: 20130430
  Transmission Date: 20140414
  Serious: Yes (Hospitalization)
  Sender: FDA-Public Use
  Company Number: None

PATIENT
  Age: 85 Year
  Sex: Male
  Weight: 67.1 kg

DRUGS (1)
  1. BUMETANIDE [Suspect]
     Indication: CARDIAC FAILURE CONGESTIVE
     Dates: start: 20101101, end: 20130423

REACTIONS (4)
  - Hypotension [None]
  - Nausea [None]
  - Vomiting [None]
  - Polyuria [None]
